FAERS Safety Report 10378450 (Version 1)
Quarter: 2014Q3

REPORT INFORMATION
  Report Type: Spontaneous
  Country: US (occurrence: US)
  Receive Date: 20140812
  Receipt Date: 20140812
  Transmission Date: 20150326
  Serious: Yes (Death, Hospitalization, Other)
  Sender: FDA-Public Use
  Company Number: US-009507513-1408USA005380

PATIENT
  Sex: Female
  Weight: 67.57 kg

DRUGS (1)
  1. NUVARING [Suspect]
     Active Substance: ETHINYL ESTRADIOL\ETONOGESTREL
     Indication: CONTRACEPTION
     Dosage: 1 RING EVERY 4 WEEKS AS DIRECTED
     Route: 067
     Dates: start: 2011, end: 20131203

REACTIONS (13)
  - Cardiac arrest [Fatal]
  - Thrombocytopenia [Unknown]
  - Lethargy [Unknown]
  - Acute respiratory failure [Not Recovered/Not Resolved]
  - Anaemia [Unknown]
  - Increased appetite [Unknown]
  - Intestinal operation [Unknown]
  - Constipation [Unknown]
  - Hypotension [Unknown]
  - Pulmonary embolism [Unknown]
  - Smear cervix abnormal [Unknown]
  - Weight increased [Unknown]
  - Muscle spasms [Unknown]

NARRATIVE: CASE EVENT DATE: 201303
